FAERS Safety Report 8612157-7 (Version None)
Quarter: 2012Q3

REPORT INFORMATION
  Report Type: 
  Country: None (occurrence: None)
  Receive Date: 20120822
  Receipt Date: 20120816
  Transmission Date: 20120928
  Serious: No
  Sender: FDA-Public Use
  Company Number: US-PFIZER INC-2012202231

PATIENT
  Sex: Male
  Weight: 90.703 kg

DRUGS (3)
  1. LISINOPRIL [Concomitant]
     Indication: BLOOD PRESSURE ABNORMAL
     Dosage: 5 MG, DAILY
  2. HYDROCHLOROTHIAZIDE [Concomitant]
     Indication: BLOOD PRESSURE ABNORMAL
     Dosage: 12.5 MG, DAILY
  3. LYRICA [Suspect]
     Indication: FIBROMYALGIA
     Dosage: 75 MG,DAILY

REACTIONS (3)
  - WEIGHT INCREASED [None]
  - PAIN [None]
  - THERAPEUTIC RESPONSE UNEXPECTED [None]
